FAERS Safety Report 8688694 (Version 3)
Quarter: 2012Q4

REPORT INFORMATION
  Report Type: 
  Country: JP (occurrence: JP)
  Receive Date: 20120727
  Receipt Date: 20121115
  Transmission Date: 20130627
  Serious: Yes (Life-Threatening, Other)
  Sender: FDA-Public Use
  Company Number: JP-PFIZER INC-2012181520

PATIENT
  Age: 65 Year
  Sex: Male

DRUGS (9)
  1. SEIBULE [Suspect]
     Indication: DIABETES MELLITUS
     Dosage: 50 mg, 3x/day
     Route: 048
     Dates: start: 201011, end: 201101
  2. ZYLORIC [Concomitant]
     Dosage: UNK
  3. DEPAS [Concomitant]
     Dosage: UNK
  4. ZETIA [Concomitant]
     Dosage: UNK
  5. TRICOR [Concomitant]
     Dosage: UNK
  6. OMEPRAL [Concomitant]
     Dosage: UNK
  7. URSO [Concomitant]
     Dosage: UNK
  8. POLARAMINE [Concomitant]
     Dosage: UNK
  9. AFINITOR [Concomitant]
     Dosage: UNK

REACTIONS (1)
  - Syncope [Recovering/Resolving]
